FAERS Safety Report 10775597 (Version 1)
Quarter: 2015Q1

REPORT INFORMATION
  Report Type: Spontaneous
  Country: AU (occurrence: AU)
  Receive Date: 20150209
  Receipt Date: 20150209
  Transmission Date: 20150721
  Serious: Yes (Other)
  Sender: FDA-Public Use
  Company Number: AU-IROKO PRODUCTS LTD-AU-I09001-15-00011

PATIENT
  Sex: Male

DRUGS (1)
  1. INDOCID [Suspect]
     Active Substance: INDOMETHACIN
     Indication: GOUT
     Route: 065

REACTIONS (1)
  - Carcinoembryonic antigen increased [Unknown]
